FAERS Safety Report 10368747 (Version 1)
Quarter: 2014Q1

REPORT INFORMATION
  Report Type: Spontaneous
  Country: US (occurrence: None)
  Receive Date: 20140306
  Receipt Date: 20140306
  Transmission Date: 20141002
  Serious: Yes (Other)
  Sender: FDA-Public Use
  Company Number: 163-21880-13022878

PATIENT
  Age: 56 Year
  Sex: Female

DRUGS (9)
  1. REVLIMID [Suspect]
     Route: 048
     Dates: start: 201212
  2. DEXAMETHASONE (DEXAMETHASONE) [Concomitant]
  3. IMITREX (SUMATRIPTAN SUCCINATE) [Concomitant]
  4. PROCRIT (ERYTHROPOIETIN) [Concomitant]
  5. NUVIGIL (ARMODAFINIL) [Concomitant]
  6. EXJADE DEFERASIROX) [Concomitant]
  7. ASPIRIN (ACETYLSALICYLIC ACID) [Concomitant]
  8. AMBIEN (ZOLPIDEM TARTRATE) [Concomitant]
  9. FLU SHOT (INFLUENZA VACCINE) [Concomitant]

REACTIONS (2)
  - Anaemia [None]
  - Iron overload [None]
